FAERS Safety Report 21148974 (Version 1)
Quarter: 2022Q3

REPORT INFORMATION
  Report Type: Spontaneous
  Country: BR (occurrence: BR)
  Receive Date: 20220729
  Receipt Date: 20220729
  Transmission Date: 20221026
  Serious: Yes (Hospitalization)
  Sender: FDA-Public Use
  Company Number: BR-DSJP-DSE-2022-126363

PATIENT
  Sex: Female

DRUGS (2)
  1. BENICAR [Suspect]
     Active Substance: OLMESARTAN MEDOXOMIL
     Indication: Hypertension
     Dosage: ONCE DAILY IN MORNING (STARTED 4 YEARS AGO)
     Route: 065
     Dates: start: 2018
  2. HYDROCHLOROTHIAZIDE [Suspect]
     Active Substance: HYDROCHLOROTHIAZIDE
     Indication: Product used for unknown indication
     Dosage: ONCE DAILY IN MORNING (STARTED 4 YEARS AGO)
     Route: 065
     Dates: start: 2018

REACTIONS (2)
  - Pain in extremity [Unknown]
  - Blood sodium decreased [Unknown]
